FAERS Safety Report 4933631-0 (Version None)
Quarter: 2006Q1

REPORT INFORMATION
  Report Type: 
  Country: None (occurrence: None)
  Receive Date: 20060306
  Receipt Date: 20050116
  Transmission Date: 20060701
  Serious: Yes (Hospitalization)
  Sender: FDA-Public Use
  Company Number: FR-ROCHE-432400

PATIENT
  Age: 35 Year
  Sex: Female
  Weight: 56 kg

DRUGS (2)
  1. LARIAM [Suspect]
     Route: 065
     Dates: start: 20050102
  2. LARIAM [Suspect]
     Route: 065
     Dates: start: 20051217, end: 20060110

REACTIONS (12)
  - ANAEMIA [None]
  - ANXIETY [None]
  - ASTHENIA [None]
  - CONVERSION DISORDER [None]
  - DYSPNOEA EXERTIONAL [None]
  - HISTRIONIC PERSONALITY DISORDER [None]
  - HYPERVENTILATION [None]
  - MALAISE [None]
  - NEUROSIS [None]
  - SLEEP DISORDER [None]
  - TACHYCARDIA [None]
  - VERTIGO [None]
